FAERS Safety Report 7632707-7 (Version None)
Quarter: 2011Q3

REPORT INFORMATION
  Report Type: 
  Country: None (occurrence: None)
  Receive Date: 20110725
  Receipt Date: 20110718
  Transmission Date: 20111222
  Serious: Yes (Hospitalization, Other)
  Sender: FDA-Public Use
  Company Number: FR-NAPPMUNDI-GBR-2011-0008546

PATIENT
  Age: 59 Year
  Sex: Female

DRUGS (4)
  1. METHADON AMIDONE HCL TAB [Suspect]
     Indication: PAIN
     Dosage: UNK
     Route: 065
  2. OXYCODONE HYDROCHLORIDE [Suspect]
     Indication: PAIN IN JAW
     Dosage: 120 MG TO 180 MG, DAILY
     Route: 048
     Dates: start: 20090215, end: 20110515
  3. OXYCODONE HYDROCHLORIDE [Suspect]
     Dosage: 180 MG, DAILY
     Route: 048
  4. DURAGESIC-12 [Suspect]
     Indication: PAIN IN JAW
     Dosage: 100 MCG, Q72H
     Route: 003
     Dates: start: 20090915, end: 20110515

REACTIONS (2)
  - HALLUCINATION [None]
  - HYPERAESTHESIA [None]
